FAERS Safety Report 6911888-4 (Version None)
Quarter: 2010Q3

REPORT INFORMATION
  Report Type: 
  Country: None (occurrence: None)
  Receive Date: 20100806
  Receipt Date: 20071114
  Transmission Date: 20110219
  Serious: Yes (Congenital Anomaly)
  Sender: FDA-Public Use
  Company Number: US-PFIZER INC-2007080798

PATIENT
  Sex: Female
  Weight: 4 kg

DRUGS (1)
  1. DILANTIN [Suspect]
     Indication: EPILEPSY

REACTIONS (2)
  - CLEFT PALATE [None]
  - DRUG EXPOSURE DURING PREGNANCY [None]
